FAERS Safety Report 17982828 (Version 2)
Quarter: 2020Q3

REPORT INFORMATION
  Report Type: Spontaneous
  Country: CA (occurrence: CA)
  Receive Date: 20200706
  Receipt Date: 20200717
  Transmission Date: 20201103
  Serious: Yes (Life-Threatening)
  Sender: FDA-Public Use
  Company Number: CA-TEVA-2020-CA-1796603

PATIENT
  Age: 16 Year
  Sex: Male
  Weight: 54 kg

DRUGS (54)
  1. DOXORUBICIN HYDROCHLORIDE INJECTION [Suspect]
     Active Substance: DOXORUBICIN HYDROCHLORIDE
     Indication: BURKITT^S LYMPHOMA
     Route: 042
  2. CALCIUM CARBONATE. [Concomitant]
     Active Substance: CALCIUM CARBONATE
  3. HEPARIN CALCIUM [Concomitant]
     Active Substance: HEPARIN CALCIUM
  4. METRONIDAZOLE. [Concomitant]
     Active Substance: METRONIDAZOLE
  5. METHOTREXATE. [Suspect]
     Active Substance: METHOTREXATE
     Indication: BURKITT^S LYMPHOMA
     Route: 037
  6. BICARBONATE DE SOUDE USP [Concomitant]
  7. FLUCONAZOLE. [Concomitant]
     Active Substance: FLUCONAZOLE
  8. HYDROCORTISONE. [Concomitant]
     Active Substance: HYDROCORTISONE
  9. LANSOPRAZOLE. [Concomitant]
     Active Substance: LANSOPRAZOLE
  10. PANTOPRAZOLE [Concomitant]
     Active Substance: PANTOPRAZOLE
  11. VINCRISTINE SULFATE. [Suspect]
     Active Substance: VINCRISTINE SULFATE
     Indication: BURKITT^S LYMPHOMA
     Route: 042
  12. CYCLOPHOSPHAMIDE. [Suspect]
     Active Substance: CYCLOPHOSPHAMIDE
     Route: 042
  13. ALLOPURINOL. [Concomitant]
     Active Substance: ALLOPURINOL
  14. CLOTRIMAZOLE. [Concomitant]
     Active Substance: CLOTRIMAZOLE
  15. EPINEPHRINE. [Concomitant]
     Active Substance: EPINEPHRINE
  16. FAMOTIDINE. [Concomitant]
     Active Substance: FAMOTIDINE
  17. FUROSEMIDE. [Concomitant]
     Active Substance: FUROSEMIDE
  18. MORPHINE [Concomitant]
     Active Substance: MORPHINE
  19. NALOXONE [Concomitant]
     Active Substance: NALOXONE
  20. RANITIDINE. [Concomitant]
     Active Substance: RANITIDINE
  21. DIPHENHYDRAMINE. [Concomitant]
     Active Substance: DIPHENHYDRAMINE
  22. LEUCOVORIN. [Concomitant]
     Active Substance: LEUCOVORIN
  23. NAPROXEN. [Concomitant]
     Active Substance: NAPROXEN
  24. POTASSIUM [Concomitant]
     Active Substance: POTASSIUM
  25. METHOTREXATE. [Suspect]
     Active Substance: METHOTREXATE
     Route: 042
  26. CEFTAZIDIME. [Concomitant]
     Active Substance: CEFTAZIDIME
  27. FOLIC ACID. [Concomitant]
     Active Substance: FOLIC ACID
  28. GABAPENTIN. [Concomitant]
     Active Substance: GABAPENTIN
  29. KETAMINE (UNKNOWN) [Concomitant]
     Active Substance: KETAMINE
  30. MAGNESIUM [Concomitant]
     Active Substance: MAGNESIUM
  31. MYCAMINE [Concomitant]
     Active Substance: MICAFUNGIN SODIUM
  32. PREDNISONE. [Concomitant]
     Active Substance: PREDNISONE
  33. TERBINAFINE. [Concomitant]
     Active Substance: TERBINAFINE
  34. VANCOMYCIN [Concomitant]
     Active Substance: VANCOMYCIN
  35. CYCLOPHOSPHAMIDE. [Suspect]
     Active Substance: CYCLOPHOSPHAMIDE
     Indication: BURKITT^S LYMPHOMA
     Route: 042
  36. CLONIDINE. [Concomitant]
     Active Substance: CLONIDINE
  37. CYTARABINE INJECTION [Concomitant]
     Active Substance: CYTARABINE
  38. DIMENHYDRINATE. [Concomitant]
     Active Substance: DIMENHYDRINATE
  39. METOCLOPRAMIDE. [Concomitant]
     Active Substance: METOCLOPRAMIDE
  40. NYSTATIN. [Concomitant]
     Active Substance: NYSTATIN
  41. CIPROFLOXACIN. [Concomitant]
     Active Substance: CIPROFLOXACIN
  42. HYDROMORPHONE [Concomitant]
     Active Substance: HYDROMORPHONE
  43. MELATONIN [Concomitant]
     Active Substance: MELATONIN
  44. PENTAMIDINE ISETHIONATE INJ 300MG/VIAL BP [Concomitant]
  45. RITUXAN [Concomitant]
     Active Substance: RITUXIMAB
  46. ACETAMINOPHEN. [Concomitant]
     Active Substance: ACETAMINOPHEN
  47. AMOXICILLIN/CLAVULANIC ACID [Concomitant]
     Active Substance: AMOXICILLIN\CLAVULANIC ACID
  48. CLINDAMYCIN. [Concomitant]
     Active Substance: CLINDAMYCIN
  49. EPIDURAL SOLUTION INJ [Concomitant]
  50. FASTURTEC [Concomitant]
     Active Substance: RASBURICASE
  51. LIDOCAINE. [Concomitant]
     Active Substance: LIDOCAINE
  52. METHYLPREDNISOLONE NOS [Concomitant]
     Active Substance: METHYLPREDNISOLONE
  53. ONDANSETRON [Concomitant]
     Active Substance: ONDANSETRON
  54. PIPERACILLIN AND TAZOBACTAM [Concomitant]
     Active Substance: PIPERACILLIN SODIUM\TAZOBACTAM SODIUM

REACTIONS (1)
  - Aplastic anaemia [Recovered/Resolved]
